FAERS Safety Report 6300965-7 (Version None)
Quarter: 2009Q3

REPORT INFORMATION
  Report Type: 
  Country: None (occurrence: None)
  Receive Date: 20090807
  Receipt Date: 20090729
  Transmission Date: 20100115
  Serious: Yes (Other)
  Sender: FDA-Public Use
  Company Number: GR-JNJFOC-20090609564

PATIENT
  Age: 29 Year
  Sex: Male

DRUGS (1)
  1. DORIBAX [Suspect]
     Indication: BACTERIAL INFECTION
     Dosage: EVERY 8 HOURS. TREATMENT DURATION: 5-6 DAYS
     Route: 041

REACTIONS (1)
  - BLOOD BILIRUBIN INCREASED [None]
